FAERS Safety Report 24675035 (Version 1)
Quarter: 2024Q4

REPORT INFORMATION
  Report Type: Report from Study
  Country: US (occurrence: US)
  Receive Date: 20241128
  Receipt Date: 20241128
  Transmission Date: 20250115
  Serious: Yes (Other)
  Sender: RECORDATI
  Company Number: US-ORPHANEU-2024004204

PATIENT

DRUGS (12)
  1. ISTURISA [Suspect]
     Active Substance: OSILODROSTAT PHOSPHATE
     Indication: Adrenal gland cancer
     Dosage: 5 MG, BID
     Route: 048
     Dates: start: 2024
  2. ISTURISA [Suspect]
     Active Substance: OSILODROSTAT PHOSPHATE
     Indication: Off label use
     Dosage: 7 MG, BID (5 MG AND 1 MG TABLETS)
     Route: 048
     Dates: start: 2024, end: 2024
  3. ISTURISA [Suspect]
     Active Substance: OSILODROSTAT PHOSPHATE
     Dosage: 7 MG, BID (5 MG AND 1 MG TABLETS)
     Route: 048
     Dates: start: 2024, end: 2024
  4. ISTURISA [Suspect]
     Active Substance: OSILODROSTAT PHOSPHATE
     Dosage: 9 MG, BID (5 MG AND 1 MG TABLETS)
     Route: 048
     Dates: start: 2024
  5. NOVOLOG [Concomitant]
     Active Substance: INSULIN ASPART
     Indication: Product used for unknown indication
     Dosage: 100 UNIT/ML, SOLUTION, TID
     Route: 058
     Dates: start: 20240426
  6. CARVEDILOL [Concomitant]
     Active Substance: CARVEDILOL
     Indication: Product used for unknown indication
     Dosage: 25 MG, BID, TABLET
     Route: 048
     Dates: start: 20240426
  7. DEXAMETHASONE [Concomitant]
     Active Substance: DEXAMETHASONE
     Indication: Product used for unknown indication
     Dosage: 1 MG, QD, TABLET
     Route: 048
     Dates: start: 20240426
  8. NIFEDIPINE [Concomitant]
     Active Substance: NIFEDIPINE
     Indication: Product used for unknown indication
     Dosage: 90 MG, QD, EXTENDED RELEASE TABLET
     Route: 048
     Dates: start: 20240426
  9. PIOGLITAZONE [Concomitant]
     Active Substance: PIOGLITAZONE
     Indication: Product used for unknown indication
     Dosage: 30 MG, QD, TABLET
     Route: 048
     Dates: start: 20240426
  10. PRAVASTATIN SODIUM [Concomitant]
     Active Substance: PRAVASTATIN SODIUM
     Indication: Product used for unknown indication
     Dosage: 40 MG, QD, TABLET
     Route: 048
     Dates: start: 20240426
  11. SPIRONOLACTONE [Concomitant]
     Active Substance: SPIRONOLACTONE
     Indication: Product used for unknown indication
     Dosage: UNK
  12. VALSARTAN [Concomitant]
     Active Substance: VALSARTAN
     Indication: Product used for unknown indication
     Dosage: 320 MG, QD, TABLET
     Route: 048
     Dates: start: 20240426

REACTIONS (6)
  - Spinal fracture [Not Recovered/Not Resolved]
  - Osteoporosis [Not Recovered/Not Resolved]
  - Decreased appetite [Not Recovered/Not Resolved]
  - Asthenia [Not Recovered/Not Resolved]
  - Back pain [Not Recovered/Not Resolved]
  - Off label use [Recovered/Resolved]

NARRATIVE: CASE EVENT DATE: 20240101
